FAERS Safety Report 8437997-9 (Version None)
Quarter: 2012Q2

REPORT INFORMATION
  Report Type: 
  Country: None (occurrence: None)
  Receive Date: 20120614
  Receipt Date: 20120601
  Transmission Date: 20120825
  Serious: No
  Sender: FDA-Public Use
  Company Number: US-AMGEN-USASP2012028590

PATIENT
  Age: 78 Year
  Sex: Female
  Weight: 90.703 kg

DRUGS (7)
  1. CHLOROTHIAZIDE [Concomitant]
     Indication: HYPERTENSION
     Dosage: UNK UNK, QD
  2. COZAAR [Concomitant]
     Indication: HYPERTENSION
     Dosage: UNK UNK, QD
  3. PROLIA [Suspect]
     Indication: OSTEOPOROSIS POSTMENOPAUSAL
     Dosage: 60 MG, Q6MO
     Route: 058
     Dates: start: 20120508
  4. SYNTHROID [Concomitant]
     Indication: HYPOTHYROIDISM
     Dosage: 150 MUG, QD
  5. LANTUS [Concomitant]
     Indication: TYPE 2 DIABETES MELLITUS
     Dosage: UNK UNK, QD
     Route: 058
  6. JANUVIA [Concomitant]
  7. PAROXETINE [Concomitant]
     Indication: DEPRESSION
     Dosage: 20 MG, UNK

REACTIONS (4)
  - FLATULENCE [None]
  - FUNCTIONAL GASTROINTESTINAL DISORDER [None]
  - FREQUENT BOWEL MOVEMENTS [None]
  - DIARRHOEA [None]
